FAERS Safety Report 8423702-9 (Version None)
Quarter: 2012Q2

REPORT INFORMATION
  Report Type: 
  Country: None (occurrence: None)
  Receive Date: 20120608
  Receipt Date: 20120131
  Transmission Date: 20120825
  Serious: No
  Sender: FDA-Public Use
  Company Number: US-ASTRAZENECA-2012SE06938

PATIENT
  Age: 79 Year
  Sex: Male

DRUGS (1)
  1. ATACAND [Suspect]
     Route: 048

REACTIONS (2)
  - DEAFNESS [None]
  - PANIC ATTACK [None]
